FAERS Safety Report 12658638 (Version 9)
Quarter: 2017Q4

REPORT INFORMATION
  Report Type: Report from Study
  Country: JP (occurrence: JP)
  Receive Date: 20160817
  Receipt Date: 20171222
  Transmission Date: 20180320
  Serious: Yes (Hospitalization)
  Sender: FDA-Public Use
  Company Number: JP-ROCHE-1811954

PATIENT
  Age: 63 Year
  Sex: Female
  Weight: 48.1 kg

DRUGS (34)
  1. MIYA-BM [Concomitant]
     Active Substance: CLOSTRIDIUM BUTYRICUM SPORES STRAIN M-55
     Indication: CONSTIPATION PROPHYLAXIS
     Route: 065
     Dates: start: 20160813
  2. REBAMIPIDE [Concomitant]
     Active Substance: REBAMIPIDE
     Route: 065
     Dates: start: 20160911
  3. DERMOVATE [Concomitant]
     Active Substance: CLOBETASOL
     Indication: PARONYCHIA
     Route: 065
     Dates: start: 20161003, end: 20161215
  4. TRANEXAMIC ACID. [Concomitant]
     Active Substance: TRANEXAMIC ACID
     Indication: HAEMORRHAGE PROPHYLAXIS
     Route: 065
     Dates: start: 20160810, end: 20160817
  5. AZUNOL [Concomitant]
     Active Substance: SODIUM GUALENATE
     Indication: STOMATITIS
     Route: 065
     Dates: start: 20150408
  6. NEW LECICARBON [Concomitant]
     Active Substance: SODIUM BICARBONATE\SODIUM PHOSPHATE, MONOBASIC
     Indication: CONSTIPATION
     Route: 065
     Dates: start: 20150413
  7. URSODEOXYCHOLIC ACID [Concomitant]
     Active Substance: URSODIOL
     Indication: ASPARTATE AMINOTRANSFERASE INCREASED
     Route: 065
     Dates: start: 20160826, end: 20160909
  8. PERTUZUMAB. [Suspect]
     Active Substance: PERTUZUMAB
     Indication: HER-2 POSITIVE BREAST CANCER
     Dosage: LOADING DOSE
     Route: 042
     Dates: start: 20150713
  9. PERTUZUMAB. [Suspect]
     Active Substance: PERTUZUMAB
     Dosage: MAINTENANCE DOSE, LAST DOSE PRIOR TO SAE ON 27 JUL 2016
     Route: 042
  10. ADONA (JAPAN) [Concomitant]
     Indication: HAEMORRHAGE PROPHYLAXIS
     Route: 065
     Dates: start: 20160810, end: 20160817
  11. 5-FLUOROURACIL [Suspect]
     Active Substance: FLUOROURACIL
     Indication: HER-2 POSITIVE BREAST CANCER
     Dosage: 500-600 MG/M2
     Route: 040
     Dates: start: 20150408
  12. EPIRUBICINE [Suspect]
     Active Substance: EPIRUBICIN
     Indication: HER-2 POSITIVE BREAST CANCER
     Dosage: 90-100 MG/M2
     Route: 042
     Dates: start: 20150408
  13. NAUZELIN [Concomitant]
     Active Substance: DOMPERIDONE
     Indication: NAUSEA
     Route: 065
     Dates: start: 20150408
  14. LYRICA [Concomitant]
     Active Substance: PREGABALIN
     Indication: PERIPHERAL SENSORY NEUROPATHY
     Route: 065
     Dates: start: 20151104
  15. FEMARA [Concomitant]
     Active Substance: LETROZOLE
     Indication: PROPHYLAXIS
     Route: 065
     Dates: start: 20160720, end: 20160810
  16. POSTERISAN FORTE [Concomitant]
     Active Substance: LIDOCAINE
     Indication: HAEMORRHOIDS
     Route: 065
     Dates: start: 20150416
  17. AMITIZA [Concomitant]
     Active Substance: LUBIPROSTONE
     Indication: CONSTIPATION PROPHYLAXIS
     Route: 065
     Dates: start: 20160905
  18. CYCLOPHOSPHAMIDE. [Suspect]
     Active Substance: CYCLOPHOSPHAMIDE
     Indication: HER-2 POSITIVE BREAST CANCER
     Dosage: 500-600 MG/M2
     Route: 042
     Dates: start: 20150408
  19. DECADRON [Concomitant]
     Active Substance: DEXAMETHASONE
     Indication: NAUSEA
     Route: 065
     Dates: start: 20150408
  20. EMEND [Concomitant]
     Active Substance: APREPITANT
     Indication: NAUSEA
     Route: 065
     Dates: start: 20150408
  21. MYSLEE [Concomitant]
     Active Substance: ZOLPIDEM TARTRATE
     Indication: INSOMNIA
     Route: 065
     Dates: start: 20150514
  22. SATOSALBE [Concomitant]
     Active Substance: ZINC OXIDE
     Indication: HAEMORRHOIDS
     Route: 065
     Dates: start: 20150414
  23. ALOXI [Concomitant]
     Active Substance: PALONOSETRON HYDROCHLORIDE
     Indication: NAUSEA
     Route: 065
     Dates: start: 20150408
  24. SENNOSIDE [Concomitant]
     Active Substance: SENNOSIDES
     Indication: CONSTIPATION
     Route: 065
     Dates: start: 20150416
  25. DIAZEPAM. [Concomitant]
     Active Substance: DIAZEPAM
     Indication: PROPHYLAXIS
     Route: 065
     Dates: start: 20160810, end: 20160810
  26. URSODEOXYCHOLIC ACID [Concomitant]
     Active Substance: URSODIOL
     Indication: GAMMA-GLUTAMYLTRANSFERASE INCREASED
  27. NEXIUM [Concomitant]
     Active Substance: ESOMEPRAZOLE MAGNESIUM
     Route: 065
     Dates: start: 20160831
  28. HANGE-SHASHIN-TO [Concomitant]
     Active Substance: HERBALS
     Indication: STOMATITIS
     Route: 065
     Dates: start: 20150406
  29. MUCOSOLVAN [Concomitant]
     Active Substance: AMBROXOL HYDROCHLORIDE
     Indication: MYCOBACTERIAL INFECTION
     Route: 065
     Dates: start: 20150204
  30. URSODEOXYCHOLIC ACID [Concomitant]
     Active Substance: URSODIOL
     Indication: ALANINE AMINOTRANSFERASE INCREASED
  31. TRASTUZUMAB EMTANSINE [Suspect]
     Active Substance: ADO-TRASTUZUMAB EMTANSINE
     Indication: HER-2 POSITIVE BREAST CANCER
     Dosage: 138 MG - LAST DOSE PRIOR TO SAE ON 27 JUL 2016
     Route: 042
     Dates: start: 20150713
  32. DECADRON [Concomitant]
     Active Substance: DEXAMETHASONE
     Route: 065
     Dates: start: 20150409
  33. GASTER [Concomitant]
     Active Substance: FAMOTIDINE
     Indication: NAUSEA
     Route: 065
     Dates: start: 20150409
  34. PARIET [Concomitant]
     Active Substance: RABEPRAZOLE SODIUM
     Indication: GASTRITIS
     Route: 065
     Dates: start: 20150615, end: 20160810

REACTIONS (1)
  - Pneumonia [Recovered/Resolved]

NARRATIVE: CASE EVENT DATE: 20160805
